FAERS Safety Report 9649255 (Version 1)
Quarter: 2013Q4

REPORT INFORMATION
  Report Type: Spontaneous
  Country: US (occurrence: US)
  Receive Date: 20131028
  Receipt Date: 20131028
  Transmission Date: 20140711
  Serious: Yes (Other)
  Sender: FDA-Public Use
  Company Number: US-GLAXOSMITHKLINE-A1047007A

PATIENT
  Age: 37 Year
  Sex: Male

DRUGS (1)
  1. FLOLAN [Suspect]
     Indication: COR PULMONALE CHRONIC
     Dosage: 6.9NGKM CONTINUOUS
     Route: 042
     Dates: start: 20130923, end: 20131020

REACTIONS (2)
  - Lung transplant [Unknown]
  - Therapeutic procedure [Unknown]
